FAERS Safety Report 9177638 (Version 1)
Quarter: 2013Q1

REPORT INFORMATION
  Report Type: Spontaneous
  Country: JP (occurrence: JP)
  Receive Date: 20130321
  Receipt Date: 20130321
  Transmission Date: 20140127
  Serious: Yes (Other)
  Sender: FDA-Public Use
  Company Number: JP-ASTRAZENECA-2013SE17637

PATIENT
  Sex: 0

DRUGS (1)
  1. XYLOCAINE [Suspect]
     Indication: SPINAL ANAESTHESIA
     Dosage: DOSE UNKNOWN
     Route: 037

REACTIONS (2)
  - Shock [Unknown]
  - Loss of consciousness [Recovered/Resolved]
